FAERS Safety Report 5368135-7 (Version None)
Quarter: 2007Q2

REPORT INFORMATION
  Report Type: 
  Country: None (occurrence: None)
  Receive Date: 20070625
  Receipt Date: 20070622
  Transmission Date: 20071010
  Serious: Yes (Other)
  Sender: FDA-Public Use
  Company Number: US-RB-007027-07

PATIENT
  Sex: Male

DRUGS (2)
  1. SUBOXONE [Suspect]
  2. TAMSULOSIN HCL [Concomitant]

REACTIONS (1)
  - URINARY RETENTION [None]
